FAERS Safety Report 16053314 (Version 3)
Quarter: 2019Q2

REPORT INFORMATION
  Report Type: Report from Study
  Country: US (occurrence: US)
  Receive Date: 20190308
  Receipt Date: 20190408
  Transmission Date: 20190711
  Serious: No
  Sender: FDA-Public Use
  Company Number: PHEH2019US009728

PATIENT
  Age: 57 Year
  Sex: Female

DRUGS (1)
  1. COSENTYX [Suspect]
     Active Substance: SECUKINUMAB
     Indication: PSORIASIS
     Dosage: 300 MG, QMO
     Route: 058
     Dates: start: 20181213

REACTIONS (6)
  - Pain of skin [Unknown]
  - Depression [Unknown]
  - Fatigue [Unknown]
  - Skin atrophy [Unknown]
  - Discomfort [Unknown]
  - Skin irritation [Unknown]

NARRATIVE: CASE EVENT DATE: 20181213
